FAERS Safety Report 7334779-6 (Version None)
Quarter: 2011Q1

REPORT INFORMATION
  Report Type: 
  Country: None (occurrence: None)
  Receive Date: 20110307
  Receipt Date: 20110303
  Transmission Date: 20110831
  Serious: Yes (Other)
  Sender: FDA-Public Use
  Company Number: JP-ABBOTT-11P-087-0707000-00

PATIENT
  Age: 53 Year
  Sex: Female

DRUGS (4)
  1. METHOTREXATE [Concomitant]
     Indication: PRODUCT USED FOR UNKNOWN INDICATION
     Dosage: 6 MG/WEEK
     Dates: start: 20091126, end: 20100414
  2. HUMIRA [Suspect]
     Indication: RHEUMATOID ARTHRITIS
     Route: 058
     Dates: start: 20091126, end: 20101112
  3. METHOTREXATE [Concomitant]
     Dosage: 8 MG/WEEK
     Dates: start: 20100415, end: 20110210
  4. HUMIRA [Suspect]
     Dates: start: 20101126, end: 20110210

REACTIONS (1)
  - LIPODYSTROPHY ACQUIRED [None]
